FAERS Safety Report 7324514-X (Version None)
Quarter: 2011Q1

REPORT INFORMATION
  Report Type: 
  Country: None (occurrence: None)
  Receive Date: 20110301
  Receipt Date: 20101117
  Transmission Date: 20110831
  Serious: Yes (Hospitalization)
  Sender: FDA-Public Use
  Company Number: DE-BAYER-201047693GPV

PATIENT
  Sex: Female
  Weight: 56 kg

DRUGS (9)
  1. NEXIUM [Concomitant]
     Indication: ARRHYTHMIA PROPHYLAXIS
     Dosage: 40 ?L (DAILY DOSE), , ORAL
     Route: 048
  2. PERFALGAN [Concomitant]
     Indication: ANAPHYLACTIC REACTION
     Dosage: UNK
     Route: 042
     Dates: start: 20101102
  3. SORAFENIB (RAF KINASE INHIBITOR) [Suspect]
     Indication: THYROID CANCER
     Dosage: 800 MG (DAILY DOSE), , ORAL
     Route: 048
     Dates: start: 20101104, end: 20101114
  4. PLAVIX [Concomitant]
     Indication: ARRHYTHMIA
     Route: 048
  5. ACETAMINOPHEN [Concomitant]
     Dosage: DAILY DOSE: 2-3 CAPSULES/DAY
     Route: 048
  6. CALCIUM [Concomitant]
     Dosage: 100 DF (DAILY DOSE), , ORAL
     Route: 048
  7. LEVOTHYROXINE SODIUM [Concomitant]
     Indication: HYPOTHYROIDISM
     Dosage: 100 MG (DAILY DOSE), , ORAL
     Route: 048
     Dates: start: 20100801
  8. DRONEDARONE [Concomitant]
     Indication: ARRHYTHMIA
     Dosage: DAILY DOSE 400 MG
     Dates: start: 20101104, end: 20101115
  9. FURADANTINE [Concomitant]
     Indication: PROPHYLAXIS URINARY TRACT INFECTION
     Route: 048

REACTIONS (2)
  - DERMATITIS EXFOLIATIVE [None]
  - LIP OEDEMA [None]
